FAERS Safety Report 13248854 (Version 1)
Quarter: 2017Q1

REPORT INFORMATION
  Report Type: Spontaneous
  Country: US (occurrence: US)
  Receive Date: 20170218
  Receipt Date: 20170218
  Transmission Date: 20170428
  Serious: No
  Sender: FDA-Public Use
  Company Number: US-ALLERGAN-1635565US

PATIENT
  Age: 70 Year
  Sex: Female

DRUGS (2)
  1. LEVOTHYROXINE. [Concomitant]
     Active Substance: LEVOTHYROXINE
     Indication: HYPOTHYROIDISM
     Dosage: 75 ?G, QD
     Route: 048
  2. RESTASIS [Suspect]
     Active Substance: CYCLOSPORINE
     Indication: DRY EYE
     Dosage: 2 GTT, BID
     Route: 047
     Dates: start: 20160215, end: 20160219

REACTIONS (6)
  - Erythema of eyelid [Recovering/Resolving]
  - Ocular discomfort [Recovering/Resolving]
  - Eyelid oedema [Recovering/Resolving]
  - Eyelid ptosis [Recovering/Resolving]
  - Eye irritation [Recovering/Resolving]
  - Foreign body sensation in eyes [Recovering/Resolving]

NARRATIVE: CASE EVENT DATE: 20160215
